FAERS Safety Report 15657364 (Version 1)
Quarter: 2018Q4

REPORT INFORMATION
  Report Type: Report from Study
  Country: ZA (occurrence: ZA)
  Receive Date: 20181126
  Receipt Date: 20181126
  Transmission Date: 20190205
  Serious: Yes (Life-Threatening)
  Sender: FDA-Public Use
  Company Number: ZA-SAKK-2018SA176988AA

PATIENT
  Age: 78 Year
  Sex: Female

DRUGS (1)
  1. INSULIN GLARGINE [Suspect]
     Active Substance: INSULIN GLARGINE
     Indication: TYPE 2 DIABETES MELLITUS
     Dosage: 10 DF, QD (AT NIGHT)
     Route: 058
     Dates: start: 20180627

REACTIONS (1)
  - Coma [Not Recovered/Not Resolved]

NARRATIVE: CASE EVENT DATE: 20180628
